FAERS Safety Report 8134329-0 (Version None)
Quarter: 2012Q1

REPORT INFORMATION
  Report Type: 
  Country: None (occurrence: None)
  Receive Date: 20120210
  Receipt Date: 20120127
  Transmission Date: 20120608
  Serious: Yes (Hospitalization, Other)
  Sender: FDA-Public Use
  Company Number: 216649

PATIENT
  Age: 89 Year
  Sex: Female

DRUGS (7)
  1. ACETAMINOPHEN [Concomitant]
  2. QUININE SULFATE [Suspect]
     Indication: PRODUCT USED FOR UNKNOWN INDICATION
     Dosage: 120 MG
  3. CLOBETASONE (CLOBETASONE) (0.05 %) [Suspect]
     Indication: PRODUCT USED FOR UNKNOWN INDICATION
     Dosage: TOPICAL
     Route: 061
  4. THIAMINE CHLORHYRATE (THIAMINE) [Concomitant]
  5. PROPRANOLOL CHLORHYDRATE LP (PROPRANOLOL HYDROCHLORIDE) [Concomitant]
  6. ERGOCALCIFEROL [Concomitant]
  7. CALCIPOTRIENE [Suspect]
     Indication: PSORIASIS
     Dosage: 34.59G PER WEEK,TOPICAL
     Route: 061

REACTIONS (9)
  - THROMBOCYTOPENIA [None]
  - ASTHENIA [None]
  - ALTERED STATE OF CONSCIOUSNESS [None]
  - BLOOD CALCIUM INCREASED [None]
  - FALL [None]
  - BLOOD ALBUMIN INCREASED [None]
  - DEHYDRATION [None]
  - DELIRIUM [None]
  - BLOOD PHOSPHORUS DECREASED [None]
